FAERS Safety Report 22635388 (Version 1)
Quarter: 2023Q2

REPORT INFORMATION
  Report Type: Spontaneous
  Country: US (occurrence: None)
  Receive Date: 20230622
  Receipt Date: 20230622
  Transmission Date: 20230721
  Serious: Yes (Other)
  Sender: FDA-Public Use
  Company Number: None

PATIENT
  Age: 45 Year
  Sex: Female
  Weight: 53.55 kg

DRUGS (1)
  1. AQUASOL A [Suspect]
     Active Substance: VITAMIN A PALMITATE
     Indication: Vitamin A deficiency
     Dosage: OTHER QUANTITY : 1 INJECTION(S);?FREQUENCY : DAILY;?
     Route: 030
     Dates: start: 20230611, end: 20230622

REACTIONS (1)
  - Alopecia [None]

NARRATIVE: CASE EVENT DATE: 20230618
